FAERS Safety Report 4944189-4 (Version None)
Quarter: 2006Q1

REPORT INFORMATION
  Report Type: 
  Country: None (occurrence: None)
  Receive Date: 20060315
  Receipt Date: 20060306
  Transmission Date: 20060701
  Serious: Yes (Other)
  Sender: FDA-Public Use
  Company Number: BE-JNJFOC-20060301735

PATIENT
  Age: 64 Year
  Sex: Male

DRUGS (8)
  1. REMICADE [Suspect]
     Route: 042
  2. REMICADE [Suspect]
     Route: 042
  3. REMICADE [Suspect]
     Indication: RHEUMATOID ARTHRITIS
     Route: 042
  4. METHOTREXATE [Concomitant]
     Route: 065
     Dates: start: 20000727
  5. ARTHROTEC [Concomitant]
     Route: 065
     Dates: start: 20000101
  6. ARTHROTEC [Concomitant]
     Route: 065
     Dates: start: 20000101
  7. FOLIC ACID [Concomitant]
     Route: 065
     Dates: start: 20000727
  8. CONTRAMAL [Concomitant]
     Route: 065

REACTIONS (1)
  - TUBERCULOSIS [None]
